FAERS Safety Report 10384568 (Version 2)
Quarter: 2014Q3

REPORT INFORMATION
  Report Type: Spontaneous
  Country: FR (occurrence: None)
  Receive Date: 20140812
  Receipt Date: 20140929
  Transmission Date: 20150326
  Serious: Yes (Death, Life-Threatening, Hospitalization, Other)
  Sender: FDA-Public Use
  Company Number: 2014FR003361

PATIENT
  Age: 78 Year
  Sex: Male
  Weight: 85 kg

DRUGS (2)
  1. ICLUSIG [Suspect]
     Active Substance: PONATINIB
     Indication: CHRONIC MYELOID LEUKAEMIA
     Route: 048
     Dates: start: 20140130, end: 20140319
  2. ICLUSIG [Suspect]
     Active Substance: PONATINIB
     Route: 048
     Dates: start: 20140130, end: 20140319

REACTIONS (9)
  - Atrial fibrillation [None]
  - Hypokalaemia [None]
  - Ventricular tachycardia [None]
  - Microcytic anaemia [None]
  - Mitral valve incompetence [None]
  - Arrhythmia [None]
  - Renal failure acute [None]
  - Supraventricular tachycardia [None]
  - Cardiac failure [None]

NARRATIVE: CASE EVENT DATE: 20140319
